FAERS Safety Report 9169901 (Version 1)
Quarter: 2013Q1

REPORT INFORMATION
  Report Type: Spontaneous
  Country: US (occurrence: None)
  Receive Date: 20130314
  Receipt Date: 20130314
  Transmission Date: 20140127
  Serious: Yes (Other)
  Sender: FDA-Public Use
  Company Number: None

PATIENT
  Age: 53 Year
  Sex: Female
  Weight: 44.45 kg

DRUGS (1)
  1. PROLIA [Suspect]
     Indication: OSTEOPOROSIS
     Dosage: STANDARD DOSE EVERY 6 MTHS CUTANEOUS
     Route: 003
     Dates: start: 20120806, end: 20130308

REACTIONS (3)
  - Bladder pain [None]
  - Cystitis [None]
  - Cystitis interstitial [None]
